FAERS Safety Report 4331603-0 (Version None)
Quarter: 2004Q1

REPORT INFORMATION
  Report Type: 
  Country: None (occurrence: None)
  Receive Date: 20040329
  Receipt Date: 20040318
  Transmission Date: 20041129
  Serious: Yes (Hospitalization)
  Sender: FDA-Public Use
  Company Number: 2004UW05288

PATIENT
  Age: 52 Year
  Sex: Female
  Weight: 72.5755 kg

DRUGS (4)
  1. FASLODEX [Suspect]
     Dosage: 250 MG/5 ML
  2. COUMADIN [Concomitant]
  3. ZOMETA [Concomitant]
  4. PAIN MEDICATIONS [Concomitant]

REACTIONS (1)
  - PULMONARY EMBOLISM [None]
